FAERS Safety Report 14175036 (Version 1)
Quarter: 2017Q4

REPORT INFORMATION
  Report Type: Spontaneous
  Country: DE (occurrence: DE)
  Receive Date: 20171109
  Receipt Date: 20171109
  Transmission Date: 20180321
  Serious: Yes (Other)
  Sender: FDA-Public Use
  Company Number: DE-TEVA-823159GER

PATIENT
  Age: 56 Year
  Sex: Male

DRUGS (4)
  1. METHOTREXATE. [Suspect]
     Active Substance: METHOTREXATE
     Indication: MYCOSIS FUNGOIDES
     Dosage: 80MG SINGLE DOSE
     Route: 042
  2. METHOTREXATE. [Suspect]
     Active Substance: METHOTREXATE
     Indication: MYCOSIS FUNGOIDES
     Dosage: HIGH DOSE WITH CYTARABINE, TWO WEEKLY COURSES
     Route: 037
  3. DOXORUBICIN [Concomitant]
     Active Substance: DOXORUBICIN
     Indication: SKIN LESION
     Route: 065
  4. CYTARABINE. [Concomitant]
     Active Substance: CYTARABINE
     Dosage: HIGH-DOSE
     Route: 065

REACTIONS (3)
  - Neutropenic sepsis [Unknown]
  - Dermatitis [Unknown]
  - Febrile neutropenia [Unknown]
